FAERS Safety Report 8799236 (Version 2)
Quarter: 2012Q4

REPORT INFORMATION
  Report Type: 
  Country: US (occurrence: US)
  Receive Date: 20120920
  Receipt Date: 20121108
  Transmission Date: 20130627
  Serious: Yes (Hospitalization, Other)
  Sender: FDA-Public Use
  Company Number: US-ASTRAZENECA-2012SE71528

PATIENT
  Age: 60 Year
  Sex: Male
  Weight: 127 kg

DRUGS (16)
  1. SEROQUEL XR [Suspect]
     Indication: BIPOLAR I DISORDER
     Route: 048
     Dates: start: 2010
  2. DEPAKOTE ER [Concomitant]
     Route: 048
  3. DEPAKOTE ER [Concomitant]
     Route: 048
  4. BYSTOLIC [Concomitant]
     Route: 048
  5. DEXILANT [Concomitant]
     Route: 048
  6. KLONIPIN [Concomitant]
     Indication: ANXIETY
     Route: 048
     Dates: start: 2008
  7. BUSPIRONE [Concomitant]
     Route: 048
  8. GLYCOPYRROLATE [Concomitant]
     Indication: DYSPEPSIA
     Route: 048
  9. GLYCOPYRROLATE [Concomitant]
     Indication: OESOPHAGEAL DISORDER
     Route: 048
  10. AMBIEN CR [Concomitant]
     Indication: INSOMNIA
     Route: 048
     Dates: start: 2009
  11. BAYER ASPIRIN [Concomitant]
     Route: 048
  12. MULTIVITAMIN [Concomitant]
     Route: 048
  13. VOLTAREN [Concomitant]
     Indication: PAIN IN EXTREMITY
     Dosage: PRN
     Route: 048
  14. VOLTAREN [Concomitant]
     Indication: PAIN IN EXTREMITY
     Dosage: PRN
  15. BUSPAR [Concomitant]
  16. ASPIRIN [Concomitant]

REACTIONS (13)
  - Staphylococcal infection [Unknown]
  - Meniscus injury [Unknown]
  - Tinea pedis [Unknown]
  - Nephrolithiasis [Unknown]
  - Sleep apnoea syndrome [Unknown]
  - Stress [Unknown]
  - Depression [Unknown]
  - Oesophageal disorder [Unknown]
  - Skin ulcer [Unknown]
  - Hiatus hernia [Unknown]
  - Varicose vein [Unknown]
  - Blood cholesterol increased [Unknown]
  - Dyspepsia [Unknown]
